FAERS Safety Report 18575933 (Version 1)
Quarter: 2020Q4

REPORT INFORMATION
  Report Type: Spontaneous
  Country: US (occurrence: US)
  Receive Date: 20201203
  Receipt Date: 20201203
  Transmission Date: 20210114
  Serious: Yes (Other)
  Sender: FDA-Public Use
  Company Number: US-PURDUE-USA-2020-0177061

PATIENT
  Sex: Female

DRUGS (1)
  1. OXYCONTIN [Suspect]
     Active Substance: OXYCODONE HYDROCHLORIDE
     Indication: ANALGESIC THERAPY
     Dosage: UNKNOWN DOSAGE
     Route: 048

REACTIONS (11)
  - Drug withdrawal syndrome [Unknown]
  - Emotional distress [Unknown]
  - Amnesia [Unknown]
  - Impaired driving ability [Unknown]
  - Loss of personal independence in daily activities [Unknown]
  - Drug dependence [Unknown]
  - Drug tolerance [Unknown]
  - Hypersomnia [Unknown]
  - Dizziness [Unknown]
  - Headache [Unknown]
  - Weight increased [Unknown]
